FAERS Safety Report 5265853-6 (Version None)
Quarter: 2007Q1

REPORT INFORMATION
  Report Type: 
  Country: None (occurrence: None)
  Receive Date: 20070312
  Receipt Date: 20070312
  Transmission Date: 20070707
  Serious: Yes (Life-Threatening, Hospitalization)
  Sender: FDA-Public Use
  Company Number: None

PATIENT
  Age: 68 Year
  Sex: Female
  Weight: 58.0604 kg

DRUGS (9)
  1. PACLITAXEL [Suspect]
     Indication: BREAST CANCER
     Dosage: 280 MG   Q2WEEKS   IV BOLUS  (DURATION: ONE DOSE GIVEN)
     Route: 040
     Dates: start: 20070220, end: 20070220
  2. PACLITAXEL [Suspect]
     Indication: CHEMOTHERAPY
     Dosage: 280 MG   Q2WEEKS   IV BOLUS  (DURATION: ONE DOSE GIVEN)
     Route: 040
     Dates: start: 20070220, end: 20070220
  3. DOXORUBICIN HCL [Concomitant]
  4. CYCLOPHOSPHAMIDE [Concomitant]
  5. ARANESP [Concomitant]
  6. DECADRON [Concomitant]
  7. TAGAMET [Concomitant]
  8. BENADRYL [Concomitant]
  9. NEULASTA [Concomitant]

REACTIONS (3)
  - ACUTE RESPIRATORY DISTRESS SYNDROME [None]
  - FATIGUE [None]
  - GASTROINTESTINAL HAEMORRHAGE [None]
